FAERS Safety Report 11188550 (Version 1)
Quarter: 2015Q2

REPORT INFORMATION
  Report Type: Spontaneous
  Country: US (occurrence: None)
  Receive Date: 20150612
  Receipt Date: 20150612
  Transmission Date: 20150821
  Serious: Yes (Death, Hospitalization)
  Sender: FDA-Public Use
  Company Number: None

PATIENT
  Age: 20 Year
  Sex: Male
  Weight: 94 kg

DRUGS (2)
  1. ZYPREXA [Concomitant]
     Active Substance: OLANZAPINE
  2. CYTARABINE. [Suspect]
     Active Substance: CYTARABINE
     Dates: end: 20091115

REACTIONS (5)
  - Neutropenia [None]
  - Respiratory failure [None]
  - Influenza A virus test positive [None]
  - Aspergillus test positive [None]
  - Pyrexia [None]

NARRATIVE: CASE EVENT DATE: 20091124
